FAERS Safety Report 4803123-8 (Version None)
Quarter: 2005Q4

REPORT INFORMATION
  Report Type: 
  Country: None (occurrence: None)
  Receive Date: 20051013
  Receipt Date: 20050923
  Transmission Date: 20060501
  Serious: Yes (Hospitalization)
  Sender: FDA-Public Use
  Company Number: USA0509109104

PATIENT
  Age: 75 Year
  Sex: Female

DRUGS (1)
  1. FORTEO [Suspect]
     Dates: start: 20050906

REACTIONS (4)
  - DRUG DOSE OMISSION [None]
  - INFECTION [None]
  - PNEUMONIA [None]
  - SINUSITIS [None]
